FAERS Safety Report 5302311-4 (Version None)
Quarter: 2007Q2

REPORT INFORMATION
  Report Type: 
  Country: None (occurrence: None)
  Receive Date: 20070419
  Receipt Date: 20070410
  Transmission Date: 20071010
  Serious: Yes (Disabling)
  Sender: FDA-Public Use
  Company Number: HQWYE102110APR07

PATIENT
  Sex: Male

DRUGS (9)
  1. CORDARONE [Suspect]
     Indication: TACHYARRHYTHMIA
     Route: 048
     Dates: start: 20040415, end: 20070101
  2. CORDARONE [Suspect]
     Indication: ATRIAL FIBRILLATION
  3. MCP ^BETAPHARM^ [Concomitant]
     Indication: REFLUX OESOPHAGITIS
     Dosage: UNSPECIFIED DOSE AND REGIMEN
     Route: 048
     Dates: start: 20040709
  4. FUROSEMID ^DAK^ [Concomitant]
     Indication: RENAL FAILURE CHRONIC
     Dosage: 750 MG
     Route: 048
  5. CALCIUM CARBONATE [Concomitant]
     Indication: PHOSPHORUS METABOLISM DISORDER
     Dosage: 3 G
     Route: 048
     Dates: start: 20050101
  6. CARVEDILOL [Concomitant]
     Indication: CORONARY ARTERY DISEASE
     Dosage: 37.5 MG
     Route: 048
     Dates: start: 20050107
  7. CARVEDILOL [Concomitant]
     Indication: ARRHYTHMIA
  8. NEXIUM [Suspect]
     Indication: REFLUX OESOPHAGITIS
     Route: 048
     Dates: start: 20040209, end: 20070101
  9. MARCUMAR [Concomitant]
     Indication: ARRHYTHMIA
     Dosage: ^CORRESPONDING TO INR^
     Route: 048
     Dates: start: 20040811

REACTIONS (1)
  - AGEUSIA [None]
